FAERS Safety Report 14035060 (Version 1)
Quarter: 2017Q4

REPORT INFORMATION
  Report Type: Spontaneous
  Country: US (occurrence: US)
  Receive Date: 20171003
  Receipt Date: 20171003
  Transmission Date: 20180321
  Serious: No
  Sender: FDA-Public Use
  Company Number: US-GALDERMA-US17007150

PATIENT
  Sex: Female

DRUGS (1)
  1. SOOLANTRA [Suspect]
     Active Substance: IVERMECTIN
     Indication: PRODUCT USED FOR UNKNOWN INDICATION
     Dosage: 1%
     Route: 061

REACTIONS (3)
  - Dermatitis allergic [Unknown]
  - Erythema [Unknown]
  - Swelling face [Unknown]
